FAERS Safety Report 4873376-9 (Version None)
Quarter: 2006Q1

REPORT INFORMATION
  Report Type: 
  Country: None (occurrence: None)
  Receive Date: 20060105
  Receipt Date: 20051221
  Transmission Date: 20060701
  Serious: Yes (Other)
  Sender: FDA-Public Use
  Company Number: GBWYE263123DEC05

PATIENT
  Sex: Female

DRUGS (3)
  1. ENBREL [Suspect]
     Indication: DRUG USE FOR UNKNOWN INDICATION
     Dosage: UNKNOWN
     Route: 058
     Dates: start: 20040812, end: 20051115
  2. SULFASALAZINE [Concomitant]
     Dosage: UNKNOWN
  3. METHOTREXATE [Concomitant]

REACTIONS (1)
  - NEUTROPENIA [None]
